FAERS Safety Report 16738095 (Version 3)
Quarter: 2019Q3

REPORT INFORMATION
  Report Type: Spontaneous
  Country: AT (occurrence: AT)
  Receive Date: 20190824
  Receipt Date: 20190917
  Transmission Date: 20191005
  Serious: Yes (Death, Life-Threatening, Hospitalization)
  Sender: FDA-Public Use
  Company Number: PHHY2019AT195907

PATIENT
  Age: 65 Year
  Sex: Male

DRUGS (7)
  1. KEYTRUDA [Suspect]
     Active Substance: PEMBROLIZUMAB
     Dosage: 180 MG, BID
     Route: 065
     Dates: start: 20190802
  2. CARBOPLATIN. [Suspect]
     Active Substance: CARBOPLATIN
     Dosage: 330 MG, UNK
     Route: 065
     Dates: start: 20190802
  3. KEYTRUDA [Suspect]
     Active Substance: PEMBROLIZUMAB
     Indication: SQUAMOUS CELL CARCINOMA OF LUNG
     Dosage: 180 MG, BID
     Route: 065
     Dates: start: 20190627
  4. ABRAXANE [Suspect]
     Active Substance: PACLITAXEL
     Indication: SQUAMOUS CELL CARCINOMA OF LUNG
     Dosage: 200 MG, UNK
     Route: 065
     Dates: start: 20190627
  5. CARBOPLATIN. [Suspect]
     Active Substance: CARBOPLATIN
     Indication: SQUAMOUS CELL CARCINOMA OF LUNG
     Dosage: 330 MG, UNK
     Route: 065
     Dates: start: 20190627
  6. ABRAXANE [Suspect]
     Active Substance: PACLITAXEL
     Dosage: 200 MG, UNK
     Route: 065
     Dates: start: 20190802
  7. PEMETREXED. [Suspect]
     Active Substance: PEMETREXED
     Indication: SQUAMOUS CELL CARCINOMA OF LUNG
     Route: 065

REACTIONS (6)
  - Cheilitis [Unknown]
  - Epidermolysis [Unknown]
  - Toxic epidermal necrolysis [Unknown]
  - Rash [Unknown]
  - Scab [Unknown]
  - Staphylococcal infection [Fatal]
